FAERS Safety Report 16453367 (Version 1)
Quarter: 2019Q2

REPORT INFORMATION
  Report Type: Spontaneous
  Country: US (occurrence: US)
  Receive Date: 20190619
  Receipt Date: 20190619
  Transmission Date: 20190711
  Serious: No
  Sender: FDA-Public Use
  Company Number: US-SA-2019SA162759

PATIENT
  Age: 59 Year
  Sex: Female

DRUGS (1)
  1. PRALUENT [Suspect]
     Active Substance: ALIROCUMAB
     Dosage: UNK
     Dates: start: 201805

REACTIONS (3)
  - Myalgia [Unknown]
  - Muscle spasms [Unknown]
  - Product dose omission [Unknown]

NARRATIVE: CASE EVENT DATE: 20190515
